FAERS Safety Report 10188782 (Version 1)
Quarter: 2014Q2

REPORT INFORMATION
  Report Type: Spontaneous
  Country: US (occurrence: US)
  Receive Date: 20140522
  Receipt Date: 20140522
  Transmission Date: 20141212
  Serious: No
  Sender: FDA-Public Use
  Company Number: US-SA-2014SA022946

PATIENT
  Age: 66 Year
  Sex: Female

DRUGS (3)
  1. LANTUS SOLOSTAR [Suspect]
     Indication: TYPE 2 DIABETES MELLITUS
     Dosage: TAKEN FROM: 4 DAYS?DOSE: SLIDING SCALE?FREQUENCY: VARIES
     Route: 051
  2. LANTUS [Suspect]
     Dosage: DOSE:45 UNIT(S)
     Route: 051
  3. SOLOSTAR [Concomitant]

REACTIONS (6)
  - Visual impairment [Unknown]
  - Neuropathy peripheral [Unknown]
  - Dyspnoea [Unknown]
  - Paraesthesia [Unknown]
  - Blood glucose increased [Unknown]
  - Inappropriate schedule of drug administration [Unknown]
